FAERS Safety Report 11630696 (Version 1)
Quarter: 2015Q4

REPORT INFORMATION
  Report Type: Spontaneous
  Country: US (occurrence: US)
  Receive Date: 20151014
  Receipt Date: 20151014
  Transmission Date: 20160304
  Serious: Yes (Other)
  Sender: FDA-Public Use
  Company Number: US-GLAXOSMITHKLINE-US2015GSK143171

PATIENT
  Weight: 57 kg

DRUGS (2)
  1. WELLBUTRIN [Suspect]
     Active Substance: BUPROPION HYDROCHLORIDE
     Indication: BIPOLAR DISORDER
     Dosage: UNK
     Dates: start: 1994
  2. NICOTINE UNKNOWN BRAND [Suspect]
     Active Substance: NICOTINE
     Dosage: UNK
     Dates: start: 1994

REACTIONS (6)
  - Drug hypersensitivity [Unknown]
  - Application site reaction [Unknown]
  - Adverse event [Unknown]
  - Suicidal ideation [Unknown]
  - Euphoric mood [Unknown]
  - Application site burn [Unknown]
